FAERS Safety Report 23758775 (Version 1)
Quarter: 2024Q2

REPORT INFORMATION
  Report Type: Other
  Country: US (occurrence: None)
  Receive Date: 20240418
  Receipt Date: 20240418
  Transmission Date: 20240716
  Serious: No
  Sender: FDA-Public Use
  Company Number: US-ROCHE-3500100

PATIENT
  Age: 31 Year
  Sex: Female

DRUGS (13)
  1. BEVACIZUMAB [Suspect]
     Active Substance: BEVACIZUMAB
     Indication: Malignant oligodendroglioma
     Route: 065
  2. BEVACIZUMAB [Suspect]
     Active Substance: BEVACIZUMAB
     Indication: Astrocytoma malignant
     Route: 065
     Dates: start: 201302
  3. PROCARBAZINE [Concomitant]
     Active Substance: PROCARBAZINE
     Indication: Oligodendroglioma
     Dates: start: 200205, end: 200303
  4. PROCARBAZINE [Concomitant]
     Active Substance: PROCARBAZINE
     Dates: start: 201302
  5. LOMUSTINE [Concomitant]
     Active Substance: LOMUSTINE
     Indication: Oligodendroglioma
     Dates: start: 200205, end: 200303
  6. LOMUSTINE [Concomitant]
     Active Substance: LOMUSTINE
     Dates: start: 201302
  7. VINCRISTINE [Concomitant]
     Active Substance: VINCRISTINE
     Indication: Oligodendroglioma
     Dates: start: 200205, end: 200303
  8. VINCRISTINE [Concomitant]
     Active Substance: VINCRISTINE
     Dates: start: 201302
  9. TEMOZOLOMIDE [Concomitant]
     Active Substance: TEMOZOLOMIDE
     Indication: Malignant oligodendroglioma
     Dosage: TWELVE CYCLES FOR 5 DAYS AT 28 DAY INTERVALS, BEING ON IT FOR 3 WEEKS AND OFF IT FOR 1 WEEK
     Dates: start: 200807, end: 2009
  10. TEMOZOLOMIDE [Concomitant]
     Active Substance: TEMOZOLOMIDE
     Dosage: TEMOZOLOMIDE THERAPY DAILY AT 75 MG/M2 FOR THREE WEEKS WITH ALTERNATE WEEKLY THERAPY
  11. TEMOZOLOMIDE [Concomitant]
     Active Substance: TEMOZOLOMIDE
     Dosage: ADJUVANT TEMOZOLOMIDE THERAPY AT 150 MG/M2 FOR FIVE DAYS GIVEN AT 28 DAY INTERVALS FOR ANOTHER YEAR
  12. GLIADEL [Concomitant]
     Active Substance: CARMUSTINE
     Indication: Oligodendroglioma
     Dates: start: 200802
  13. IRINOTECAN [Concomitant]
     Active Substance: IRINOTECAN
     Indication: Malignant oligodendroglioma

REACTIONS (2)
  - Off label use [Unknown]
  - No adverse event [Unknown]
